FAERS Safety Report 4852472-6 (Version None)
Quarter: 2005Q4

REPORT INFORMATION
  Report Type: 
  Country: None (occurrence: None)
  Receive Date: 20051213
  Receipt Date: 20050325
  Transmission Date: 20060501
  Serious: Yes (Life-Threatening, Other)
  Sender: FDA-Public Use
  Company Number: JP-BRISTOL-MYERS SQUIBB COMPANY-12913414

PATIENT
  Age: 67 Year
  Sex: Male

DRUGS (4)
  1. UFT [Suspect]
     Indication: LUNG ADENOCARCINOMA
     Dosage: GRANULES
     Route: 048
     Dates: start: 19950110, end: 19970224
  2. PARAPLATIN [Suspect]
     Indication: LUNG ADENOCARCINOMA
     Route: 042
     Dates: start: 19941217, end: 19941217
  3. PICIBANIL [Concomitant]
     Indication: LUNG ADENOCARCINOMA
     Dosage: DOSAGE = 5 KE
     Route: 058
     Dates: start: 19950123, end: 19970421
  4. SELBEX [Concomitant]
     Indication: GASTRITIS
     Route: 048
     Dates: start: 19950110, end: 19980524

REACTIONS (4)
  - LUNG SQUAMOUS CELL CARCINOMA STAGE UNSPECIFIED [None]
  - MYELODYSPLASTIC SYNDROME [None]
  - REFRACTORY ANAEMIA WITH EXCESS BLASTS IN TRANSFORMATION [None]
  - TREATMENT RELATED SECONDARY MALIGNANCY [None]
